FAERS Safety Report 4743864-4 (Version None)
Quarter: 2005Q3

REPORT INFORMATION
  Report Type: 
  Country: None (occurrence: None)
  Receive Date: 20050812
  Receipt Date: 20050802
  Transmission Date: 20060218
  Serious: Yes (Other)
  Sender: FDA-Public Use
  Company Number: 200512993BCC

PATIENT
  Age: 36 Year
  Sex: Female
  Weight: 100 kg

DRUGS (2)
  1. BC HEADACHE POWDER [Suspect]
     Indication: MIGRAINE
  2. ALEVE [Suspect]
     Indication: MIGRAINE
     Route: 048
     Dates: start: 20050719

REACTIONS (2)
  - CYSTITIS [None]
  - VAGINAL HAEMORRHAGE [None]
